FAERS Safety Report 8821786 (Version 1)
Quarter: 2012Q4

REPORT INFORMATION
  Report Type: 
  Country: PL (occurrence: PL)
  Receive Date: 20121002
  Receipt Date: 20121002
  Transmission Date: 20130627
  Serious: Yes (Other)
  Sender: FDA-Public Use
  Company Number: PL-VERTEX PHARMACEUTICAL INC.-2012-022013

PATIENT
  Age: 47 Year
  Sex: Male
  Weight: 86 kg

DRUGS (3)
  1. INCIVO [Suspect]
     Indication: HEPATITIS C
     Dosage: 2250 mg, UNK
     Route: 048
     Dates: start: 20120508, end: 20120730
  2. PEGASYS [Concomitant]
     Dosage: 180 ?g, qw
     Route: 058
     Dates: start: 20120508
  3. COPEGUS [Concomitant]
     Dosage: 1200 mg, UNK
     Route: 048

REACTIONS (1)
  - Proctitis [Recovered/Resolved]
